FAERS Safety Report 19975602 (Version 1)
Quarter: 2021Q4

REPORT INFORMATION
  Report Type: Spontaneous
  Country: US (occurrence: US)
  Receive Date: 20211021
  Receipt Date: 20211021
  Transmission Date: 20220303
  Serious: Yes (Life-Threatening, Hospitalization)
  Sender: FDA-Public Use
  Company Number: US-JNJFOC-20211016007

PATIENT
  Age: 19 Year
  Sex: Male
  Weight: 62.2 kg

DRUGS (1)
  1. TYLENOL [Suspect]
     Active Substance: ACETAMINOPHEN
     Indication: Hangover
     Dosage: 2500 MG
     Route: 048
     Dates: start: 20010827, end: 20010827

REACTIONS (6)
  - Acute hepatic failure [Recovered/Resolved]
  - Drug-induced liver injury [Recovered/Resolved]
  - Acute kidney injury [Recovered/Resolved]
  - Incorrect dose administered [Recovered/Resolved]
  - Product use in unapproved indication [Recovered/Resolved]
  - Toxicity to various agents [Recovered/Resolved]
